FAERS Safety Report 8462096-X (Version None)
Quarter: 2012Q2

REPORT INFORMATION
  Report Type: 
  Country: None (occurrence: None)
  Receive Date: 20120625
  Receipt Date: 20120618
  Transmission Date: 20120825
  Serious: Yes (Other)
  Sender: FDA-Public Use
  Company Number: GB-JNJFOC-20120609473

PATIENT
  Sex: Male

DRUGS (3)
  1. IMODIUM [Suspect]
     Dosage: TOTAL OF 6 CAPSULES
     Route: 048
  2. CODEINE [Concomitant]
     Indication: IRRITABLE BOWEL SYNDROME
     Route: 065
  3. IMODIUM [Suspect]
     Indication: IRRITABLE BOWEL SYNDROME
     Dosage: 1 CAPSULE
     Route: 048

REACTIONS (1)
  - HEPATIC PAIN [None]
